FAERS Safety Report 5500090-9 (Version None)
Quarter: 2007Q4

REPORT INFORMATION
  Report Type: 
  Country: None (occurrence: None)
  Receive Date: 20071024
  Receipt Date: 20071012
  Transmission Date: 20080405
  Serious: Yes (Hospitalization)
  Sender: FDA-Public Use
  Company Number: A-CH2007-18143

PATIENT
  Sex: Female

DRUGS (3)
  1. TRACLEER [Suspect]
     Indication: PULMONARY HYPERTENSION
     Dosage: 125 MG, BID, ORAL
     Route: 048
     Dates: start: 20070501
  2. PLATELET AGGREGATION INHIBITORS [Concomitant]
  3. CORTICOSTEROIDS NOS (CORTICOSTEROIDS NOS) [Concomitant]

REACTIONS (7)
  - CONDITION AGGRAVATED [None]
  - HAEMATOMA [None]
  - HAEMORRHAGE [None]
  - PULMONARY HYPERTENSION [None]
  - SKIN ULCER [None]
  - SUPERINFECTION [None]
  - ULCER [None]
